FAERS Safety Report 23862115 (Version 3)
Quarter: 2024Q2

REPORT INFORMATION
  Report Type: Spontaneous
  Country: US (occurrence: None)
  Receive Date: 20240516
  Receipt Date: 20240527
  Transmission Date: 20240716
  Serious: Yes (Other)
  Sender: FDA-Public Use
  Company Number: 2024A109408

PATIENT
  Age: 71 Month
  Sex: Female
  Weight: 20.9 kg

DRUGS (3)
  1. BUDESONIDE\FORMOTEROL FUMARATE DIHYDRATE [Suspect]
     Active Substance: BUDESONIDE\FORMOTEROL FUMARATE DIHYDRATE
     Indication: Asthma
     Dosage: 80 ?G/INHALATION, UNKNOWN UNKNOWN
     Route: 055
     Dates: start: 20230815
  2. CLARITIN [Concomitant]
     Active Substance: LORATADINE
     Indication: Multiple allergies
     Dates: start: 20220412
  3. FAMOTIDINE [Concomitant]
     Active Substance: FAMOTIDINE
     Indication: Gastrooesophageal reflux disease
     Dates: start: 20240507

REACTIONS (6)
  - Asthma [Unknown]
  - Device malfunction [Recovered/Resolved]
  - Wheezing [Unknown]
  - Incorrect dose administered by device [Unknown]
  - Drug ineffective [Unknown]
  - Extra dose administered [Unknown]
